FAERS Safety Report 10985691 (Version 1)
Quarter: 2015Q2

REPORT INFORMATION
  Report Type: Spontaneous
  Country: US (occurrence: US)
  Receive Date: 20150404
  Receipt Date: 20150404
  Transmission Date: 20150821
  Serious: No
  Sender: FDA-Public Use
  Company Number: US-SA-2014SA039506

PATIENT
  Age: 65 Year
  Sex: Male

DRUGS (1)
  1. ALLEGRA-D [Suspect]
     Active Substance: FEXOFENADINE\PSEUDOEPHEDRINE
     Indication: HYPERSENSITIVITY
     Dosage: TAKEN FROM: ONE WEEK AGO.
     Route: 048

REACTIONS (3)
  - Thinking abnormal [Unknown]
  - Ear disorder [Not Recovered/Not Resolved]
  - Insomnia [Unknown]
